FAERS Safety Report 8649903 (Version 3)
Quarter: 2013Q4

REPORT INFORMATION
  Report Type: Spontaneous
  Country: US (occurrence: US)
  Receive Date: 20120705
  Receipt Date: 20131202
  Transmission Date: 20140711
  Serious: Yes (Other)
  Sender: FDA-Public Use
  Company Number: US-PFIZER INC-2012159135

PATIENT
  Age: 74 Year
  Sex: Female
  Weight: 61.22 kg

DRUGS (7)
  1. PROTONIX [Suspect]
     Indication: DYSPEPSIA
     Dosage: 40 MG, 2X/DAY
  2. BENICAR [Concomitant]
     Indication: HYPERTENSION
     Dosage: 20 MG, DAILY
  3. ERGOCALCIFEROL [Concomitant]
     Indication: VITAMIN D DEFICIENCY
     Dosage: 1.25 MG, MONTHLY
  4. VITAMIN B12 [Concomitant]
     Dosage: 1000 MG, DAILY
  5. ASPIRIN ^BAYER^ [Concomitant]
     Indication: ANTICOAGULANT THERAPY
     Dosage: 325 MG, DAILY
  6. CALCIUM [Concomitant]
     Dosage: 600 MG, DAILY
  7. VITAMIN D [Concomitant]
     Dosage: 50000 MG, MONTHLY

REACTIONS (1)
  - Breast cancer female [Unknown]
